FAERS Safety Report 4598758-4 (Version None)
Quarter: 2005Q1

REPORT INFORMATION
  Report Type: 
  Country: None (occurrence: None)
  Receive Date: 20050304
  Receipt Date: 20050225
  Transmission Date: 20050727
  Serious: Yes (Death, Other)
  Sender: FDA-Public Use
  Company Number: PHFR2005GB01007

PATIENT
  Sex: Male

DRUGS (2)
  1. CHEMOTHERAPEUTICS,OTHER [Concomitant]
  2. ZOMETA [Suspect]
     Indication: MULTIPLE MYELOMA
     Dosage: MONTHLY
     Dates: start: 20020201, end: 20040401

REACTIONS (2)
  - DEATH [None]
  - OSTEONECROSIS [None]
